FAERS Safety Report 10718977 (Version 1)
Quarter: 2015Q1

REPORT INFORMATION
  Report Type: Spontaneous
  Country: US (occurrence: US)
  Receive Date: 20150119
  Receipt Date: 20150119
  Transmission Date: 20150721
  Serious: No
  Sender: FDA-Public Use
  Company Number: US-UNITED THERAPEUTICS-UNT-2014-002638

PATIENT
  Sex: Female
  Weight: 49.89 kg

DRUGS (2)
  1. SILDENAFIL. [Concomitant]
     Active Substance: SILDENAFIL
     Indication: PRODUCT USED FOR UNKNOWN INDICATION
  2. TYVASO [Suspect]
     Active Substance: TREPROSTINIL
     Indication: PULMONARY ARTERIAL HYPERTENSION
     Dosage: 18-54 MICROGRAMS, QID
     Dates: start: 20140620

REACTIONS (10)
  - Toothache [Unknown]
  - Dizziness [Unknown]
  - Weight decreased [Unknown]
  - Dyspnoea [Unknown]
  - Dry mouth [Recovered/Resolved]
  - Pain in jaw [Unknown]
  - Musculoskeletal pain [Unknown]
  - Headache [Not Recovered/Not Resolved]
  - Lethargy [Recovered/Resolved]
  - Osteopenia [Unknown]

NARRATIVE: CASE EVENT DATE: 2014
